FAERS Safety Report 21227890 (Version 1)
Quarter: 2022Q3

REPORT INFORMATION
  Report Type: Spontaneous
  Country: US (occurrence: US)
  Receive Date: 20220818
  Receipt Date: 20220818
  Transmission Date: 20221027
  Serious: No
  Sender: FDA-Public Use
  Company Number: US-TAKEDA-2022TUS056588

PATIENT
  Sex: Female

DRUGS (2)
  1. TAKHZYRO [Suspect]
     Active Substance: LANADELUMAB-FLYO
     Indication: Product used for unknown indication
     Dosage: UNK
     Route: 065
     Dates: start: 20220808
  2. BYDUREON [Concomitant]
     Active Substance: EXENATIDE

REACTIONS (2)
  - Blood glucose abnormal [Unknown]
  - Feeling abnormal [Unknown]
